FAERS Safety Report 6460728-9 (Version None)
Quarter: 2009Q4

REPORT INFORMATION
  Report Type: 
  Country: None (occurrence: None)
  Receive Date: 20091130
  Receipt Date: 20091119
  Transmission Date: 20100525
  Serious: Yes (Disabling)
  Sender: FDA-Public Use
  Company Number: GB-ASTRAZENECA-2009SE27630

PATIENT
  Sex: Female

DRUGS (2)
  1. LOSEC MUPS [Suspect]
     Route: 048
     Dates: start: 20060908, end: 20061113
  2. CARBIMAZOLE [Concomitant]
     Route: 048
     Dates: start: 20060815

REACTIONS (4)
  - GLOSSODYNIA [None]
  - MALAISE [None]
  - OROPHARYNGEAL PAIN [None]
  - PRURITUS [None]
